FAERS Safety Report 9596411 (Version 1)
Quarter: 2013Q4

REPORT INFORMATION
  Report Type: Spontaneous
  Country: US (occurrence: US)
  Receive Date: 20131004
  Receipt Date: 20131004
  Transmission Date: 20140711
  Serious: No
  Sender: FDA-Public Use
  Company Number: US-AMGEN-USASP2012066854

PATIENT
  Sex: Female

DRUGS (10)
  1. ENBREL [Suspect]
     Indication: PRODUCT USED FOR UNKNOWN INDICATION
     Dosage: 50 MG, QWK
     Route: 058
  2. VITAMIN D                          /00107901/ [Concomitant]
     Dosage: 1000 UNIT, UNK
  3. MULTIVITAMINS, PLAIN [Concomitant]
     Dosage: UNK
  4. PERCOCET                           /00446701/ [Concomitant]
     Dosage: 7.5-500
  5. CALCIUM [Concomitant]
     Dosage: 500 UNK, UNK
  6. FOLIC ACID [Concomitant]
     Dosage: 5 MG, UNK
  7. MOTRIN [Concomitant]
     Dosage: 400 MG, UNK
  8. LORAZEPAM [Concomitant]
     Dosage: 2 MG, UNK
  9. LUNESTA [Concomitant]
     Dosage: 1 MG, UNK
  10. ESTRADIOL [Concomitant]
     Dosage: 0.025 MG, UNK

REACTIONS (3)
  - Musculoskeletal stiffness [Unknown]
  - Pain [Unknown]
  - Fatigue [Unknown]
